FAERS Safety Report 9225853 (Version 1)
Quarter: 2013Q2

REPORT INFORMATION
  Report Type: Spontaneous
  Country: US (occurrence: US)
  Receive Date: 20130411
  Receipt Date: 20130411
  Transmission Date: 20140414
  Serious: Yes (Other)
  Sender: FDA-Public Use
  Company Number: US-BRISTOL-MYERS SQUIBB COMPANY-18737908

PATIENT
  Age: 30 Year
  Sex: Male

DRUGS (1)
  1. CEENU [Suspect]
     Indication: MEDULLOBLASTOMA

REACTIONS (2)
  - Retinal ischaemia [Unknown]
  - VIth nerve paralysis [Unknown]
